FAERS Safety Report 21912823 (Version 1)
Quarter: 2023Q1

REPORT INFORMATION
  Report Type: Spontaneous
  Country: US (occurrence: US)
  Receive Date: 20230125
  Receipt Date: 20230125
  Transmission Date: 20230417
  Serious: No
  Sender: FDA-Public Use
  Company Number: US-ALLERGAN-2242517US

PATIENT
  Age: 47 Year
  Sex: Male

DRUGS (2)
  1. BOTOX [Suspect]
     Active Substance: ONABOTULINUMTOXINA
     Indication: Muscle spasticity
     Dosage: 100 UNITS, SINGLE
     Dates: start: 20221205, end: 20221205
  2. BOTOX [Suspect]
     Active Substance: ONABOTULINUMTOXINA
     Dosage: 200 UNITS, SINGLE
     Dates: start: 20221205, end: 20221205

REACTIONS (3)
  - Dysphagia [Unknown]
  - Nausea [Unknown]
  - Dysarthria [Unknown]

NARRATIVE: CASE EVENT DATE: 20221201
